FAERS Safety Report 4406637-8 (Version None)
Quarter: 2004Q3

REPORT INFORMATION
  Report Type: 
  Country: None (occurrence: None)
  Receive Date: 20040723
  Receipt Date: 20040719
  Transmission Date: 20050211
  Serious: Yes (Other)
  Sender: FDA-Public Use
  Company Number: US-BRISTOL-MYERS SQUIBB COMPANY-12646964

PATIENT
  Age: 36 Year
  Sex: Male

DRUGS (1)
  1. SERZONE [Suspect]
     Dosage: DOSE RANGE:  75 MG TO 300 MG
     Route: 048
     Dates: start: 19960712

REACTIONS (4)
  - ALANINE AMINOTRANSFERASE INCREASED [None]
  - ASPARTATE AMINOTRANSFERASE INCREASED [None]
  - EPIDIDYMITIS [None]
  - INTENTIONAL SELF-INJURY [None]
